FAERS Safety Report 4988254-4 (Version None)
Quarter: 2006Q2

REPORT INFORMATION
  Report Type: 
  Country: None (occurrence: None)
  Receive Date: 20060425
  Receipt Date: 20060412
  Transmission Date: 20061013
  Serious: Yes (Hospitalization)
  Sender: FDA-Public Use
  Company Number: MEDI-0004425

PATIENT
  Age: 13 Month
  Weight: 7.8 kg

DRUGS (7)
  1. SYNAGIS [Suspect]
     Indication: ANTIVIRAL PROPHYLAXIS
     Dosage: 120 + 125 MG, 1 IN 30 D, INTRAMUSCULAR
     Route: 030
     Dates: start: 20050928, end: 20051123
  2. SYNAGIS [Suspect]
     Indication: ANTIVIRAL PROPHYLAXIS
     Dosage: 120 + 125 MG, 1 IN 30 D, INTRAMUSCULAR
     Route: 030
     Dates: start: 20060328, end: 20060328
  3. SYNAGIS [Suspect]
     Indication: ANTIVIRAL PROPHYLAXIS
     Dosage: 120 + 125 MG, 1 IN 30 D, INTRAMUSCULAR
     Route: 030
     Dates: start: 20050928
  4. SYNAGIS [Suspect]
     Indication: ANTIVIRAL PROPHYLAXIS
     Dosage: 120 + 125 MG, 1 IN 30 D, INTRAMUSCULAR
     Route: 030
     Dates: start: 20051026
  5. SYNAGIS [Suspect]
     Indication: ANTIVIRAL PROPHYLAXIS
     Dosage: 120 + 125 MG, 1 IN 30 D, INTRAMUSCULAR
     Route: 030
     Dates: start: 20051211
  6. SYNAGIS [Suspect]
     Indication: ANTIVIRAL PROPHYLAXIS
     Dosage: 120 + 125 MG, 1 IN 30 D, INTRAMUSCULAR
     Route: 030
     Dates: start: 20060119
  7. SYNAGIS [Suspect]
     Indication: ANTIVIRAL PROPHYLAXIS
     Dosage: 120 + 125 MG, 1 IN 30 D, INTRAMUSCULAR
     Route: 030
     Dates: start: 20060222

REACTIONS (2)
  - PYREXIA [None]
  - RESPIRATORY DISORDER [None]
